FAERS Safety Report 9795316 (Version 2)
Quarter: 2014Q1

REPORT INFORMATION
  Report Type: Spontaneous
  Country: VN (occurrence: VN)
  Receive Date: 20140103
  Receipt Date: 20140113
  Transmission Date: 20141002
  Serious: Yes (Life-Threatening, Other)
  Sender: FDA-Public Use
  Company Number: VN-ROCHE-1326935

PATIENT
  Age: 36 Year
  Sex: Male

DRUGS (7)
  1. CYMEVENE [Suspect]
     Indication: CYTOMEGALOVIRUS INFECTION
     Route: 065
  2. TIENAM [Concomitant]
     Indication: INFECTION
     Route: 065
  3. TIENAM [Concomitant]
     Indication: INFLAMMATION
  4. TAVANIC [Concomitant]
     Indication: INFECTION
     Route: 065
  5. TAVANIC [Concomitant]
     Indication: INFLAMMATION
  6. SOLU-MEDROL [Concomitant]
     Indication: INFECTION
     Route: 065
  7. SOLU-MEDROL [Concomitant]
     Indication: INFLAMMATION

REACTIONS (5)
  - Respiratory failure [Recovered/Resolved]
  - Pyrexia [Recovered/Resolved]
  - Cardiac arrest [Recovered/Resolved]
  - Depressed level of consciousness [Recovered/Resolved]
  - Pneumothorax [Recovered/Resolved]
